FAERS Safety Report 14917044 (Version 1)
Quarter: 2018Q2

REPORT INFORMATION
  Report Type: Report from Study
  Country: None (occurrence: CA)
  Receive Date: 20180520
  Receipt Date: 20180520
  Transmission Date: 20180711
  Serious: Yes (Hospitalization, Other)
  Sender: FDA-Public Use
  Company Number: CA-ABBVIE-18K-028-2357529-00

PATIENT
  Sex: Female

DRUGS (2)
  1. HUMIRA [Suspect]
     Active Substance: ADALIMUMAB
     Indication: CROHN^S DISEASE
     Route: 058
     Dates: start: 20070323, end: 2011
  2. HUMIRA [Suspect]
     Active Substance: ADALIMUMAB
     Route: 058
     Dates: start: 201201

REACTIONS (8)
  - Postoperative thrombosis [Recovering/Resolving]
  - Enterococcal infection [Recovering/Resolving]
  - Ileostomy [Recovering/Resolving]
  - Intestinal resection [Recovering/Resolving]
  - Gallbladder operation [Recovering/Resolving]
  - Staphylococcal infection [Recovering/Resolving]
  - Clostridium difficile infection [Recovering/Resolving]
  - Weight decreased [Recovered/Resolved]

NARRATIVE: CASE EVENT DATE: 2011
